FAERS Safety Report 25700363 (Version 2)
Quarter: 2025Q3

REPORT INFORMATION
  Report Type: Spontaneous
  Country: JP (occurrence: JP)
  Receive Date: 20250819
  Receipt Date: 20250826
  Transmission Date: 20251020
  Serious: No
  Sender: BOEHRINGER INGELHEIM
  Company Number: JP-NBI-2025-BI-089623

PATIENT
  Age: 54 Year
  Sex: Female

DRUGS (2)
  1. OFEV [Suspect]
     Active Substance: NINTEDANIB
     Indication: Interstitial lung disease
  2. OFEV [Suspect]
     Active Substance: NINTEDANIB
     Indication: Systemic scleroderma

REACTIONS (4)
  - Decreased immune responsiveness [Not Recovered/Not Resolved]
  - C-reactive protein increased [Recovered/Resolved]
  - Infection [Unknown]
  - Pyrexia [Recovered/Resolved]
